FAERS Safety Report 5038806-0 (Version None)
Quarter: 2006Q2

REPORT INFORMATION
  Report Type: 
  Country: None (occurrence: None)
  Receive Date: 20060626
  Receipt Date: 20060626
  Transmission Date: 20061013
  Serious: Yes (Other)
  Sender: FDA-Public Use
  Company Number: None

PATIENT
  Age: 40 Year
  Sex: Male
  Weight: 90.7194 kg

DRUGS (1)
  1. ALLEGRA [Suspect]
     Indication: SEASONAL ALLERGY
     Dosage: 1 PER DAY ORALLY
     Route: 048
     Dates: start: 20040401, end: 20050101

REACTIONS (1)
  - ERECTILE DYSFUNCTION [None]
